FAERS Safety Report 24168405 (Version 5)
Quarter: 2024Q4

REPORT INFORMATION
  Report Type: Spontaneous
  Country: PR (occurrence: PR)
  Receive Date: 20240802
  Receipt Date: 20241211
  Transmission Date: 20250115
  Serious: No
  Sender: PFIZER
  Company Number: PR-PFIZER INC-202400227088

PATIENT
  Age: 10 Year
  Sex: Male

DRUGS (2)
  1. GENOTROPIN [Suspect]
     Active Substance: SOMATROPIN
     Dosage: 1.0 MG
     Dates: start: 20240716
  2. GENOTROPIN [Suspect]
     Active Substance: SOMATROPIN
     Dosage: 1 MG, 6 DAYS PER WEEK

REACTIONS (4)
  - Drug dose omission by device [Unknown]
  - Wrong technique in device usage process [Unknown]
  - Device leakage [Unknown]
  - Device breakage [Unknown]

NARRATIVE: CASE EVENT DATE: 20240101
